FAERS Safety Report 19918536 (Version 1)
Quarter: 2021Q4

REPORT INFORMATION
  Report Type: Spontaneous
  Country: GR (occurrence: GR)
  Receive Date: 20211005
  Receipt Date: 20211005
  Transmission Date: 20220303
  Serious: Yes (Hospitalization)
  Sender: FDA-Public Use
  Company Number: GR-ELI_LILLY_AND_COMPANY-GR202109009962

PATIENT
  Age: 27 Year
  Sex: Male

DRUGS (4)
  1. ZYPADHERA [Suspect]
     Active Substance: OLANZAPINE PAMOATE
     Indication: Schizophrenia
     Dosage: 405 MG, MONTHLY (1/M)
     Route: 030
     Dates: start: 20210921
  2. ZYPADHERA [Suspect]
     Active Substance: OLANZAPINE PAMOATE
     Indication: Schizophrenia
     Dosage: 405 MG, MONTHLY (1/M)
     Route: 030
     Dates: start: 20210921
  3. ZYPADHERA [Suspect]
     Active Substance: OLANZAPINE PAMOATE
     Indication: Schizophrenia
     Dosage: 405 MG, MONTHLY (1/M)
     Route: 030
     Dates: start: 20210921
  4. ALOPERIDIN [HALOPERIDOL] [Concomitant]
     Indication: Schizophrenia
     Dosage: 5 MG, DAILY

REACTIONS (7)
  - White blood cell count increased [Recovered/Resolved]
  - Lethargy [Recovering/Resolving]
  - Depressed level of consciousness [Recovered/Resolved]
  - Tachycardia [Recovered/Resolved]
  - Post-injection delirium sedation syndrome [Recovering/Resolving]
  - Dysarthria [Recovered/Resolved]
  - Pyrexia [Recovered/Resolved]

NARRATIVE: CASE EVENT DATE: 20210921
